FAERS Safety Report 9361009 (Version 1)
Quarter: 2013Q2

REPORT INFORMATION
  Report Type: Spontaneous
  Country: US (occurrence: None)
  Receive Date: 20130620
  Receipt Date: 20130620
  Transmission Date: 20140414
  Serious: Yes (Other)
  Sender: FDA-Public Use
  Company Number: None

PATIENT
  Age: 63 Year
  Sex: Male
  Weight: 100.7 kg

DRUGS (2)
  1. MOVIPREP [Suspect]
     Indication: BOWEL PREPARATION
     Dates: start: 20130609
  2. MOVIPREP [Suspect]
     Indication: COLONOSCOPY
     Dates: start: 20130609

REACTIONS (2)
  - Pruritus generalised [None]
  - Urticaria [None]
